FAERS Safety Report 25588477 (Version 1)
Quarter: 2025Q3

REPORT INFORMATION
  Report Type: Spontaneous
  Country: US (occurrence: US)
  Receive Date: 20250722
  Receipt Date: 20250722
  Transmission Date: 20251021
  Serious: No
  Sender: STRIDES
  Company Number: US-STRIDES ARCOLAB LIMITED-2025SP008361

PATIENT
  Age: 31 Year
  Sex: Male

DRUGS (12)
  1. SERTRALINE HYDROCHLORIDE [Interacting]
     Active Substance: SERTRALINE HYDROCHLORIDE
     Indication: Anxiety
     Route: 065
  2. SERTRALINE HYDROCHLORIDE [Interacting]
     Active Substance: SERTRALINE HYDROCHLORIDE
     Route: 065
  3. VALPROIC ACID [Interacting]
     Active Substance: VALPROIC ACID
     Indication: Aggression
     Route: 065
  4. CLONAZEPAM [Interacting]
     Active Substance: CLONAZEPAM
     Indication: Anxiety
     Route: 065
  5. CLONAZEPAM [Interacting]
     Active Substance: CLONAZEPAM
     Route: 065
  6. CLONAZEPAM [Interacting]
     Active Substance: CLONAZEPAM
     Route: 065
  7. MODAFINIL [Interacting]
     Active Substance: MODAFINIL
     Indication: Somnolence
     Route: 065
  8. RISPERIDONE [Interacting]
     Active Substance: RISPERIDONE
     Indication: Anxiety
     Route: 065
  9. RISPERIDONE [Interacting]
     Active Substance: RISPERIDONE
     Route: 065
  10. CLONIDINE [Interacting]
     Active Substance: CLONIDINE
     Indication: Anxiety
     Route: 065
  11. LITHIUM [Concomitant]
     Active Substance: LITHIUM
     Indication: Aggression
     Route: 065
  12. LITHIUM [Concomitant]
     Active Substance: LITHIUM
     Route: 065

REACTIONS (4)
  - Affective disorder [Recovered/Resolved]
  - Behaviour disorder [Recovered/Resolved]
  - Drug interaction [Unknown]
  - Off label use [Unknown]
